FAERS Safety Report 25026611 (Version 1)
Quarter: 2025Q1

REPORT INFORMATION
  Report Type: Spontaneous
  Country: US (occurrence: US)
  Receive Date: 20250301
  Receipt Date: 20250301
  Transmission Date: 20250409
  Serious: No
  Sender: IPSEN BIOPHARMACEUTICALS, INC.
  Company Number: US-IPSEN Group, Research and Development-2025-04356

PATIENT
  Sex: Female

DRUGS (3)
  1. IQIRVO [Suspect]
     Active Substance: ELAFIBRANOR
     Indication: Primary biliary cholangitis
     Route: 048
  2. URSODIOL [Concomitant]
     Active Substance: URSODIOL
  3. LIPITOR [Concomitant]
     Active Substance: ATORVASTATIN CALCIUM

REACTIONS (1)
  - Blood alkaline phosphatase increased [Unknown]
